FAERS Safety Report 7466432-2 (Version None)
Quarter: 2011Q2

REPORT INFORMATION
  Report Type: 
  Country: None (occurrence: None)
  Receive Date: 20110509
  Receipt Date: 20100726
  Transmission Date: 20111010
  Serious: No
  Sender: FDA-Public Use
  Company Number: US-ALEXION-A201000890

PATIENT
  Sex: Male

DRUGS (2)
  1. NSAID'S [Concomitant]
     Dosage: UNK
     Route: 048
  2. SOLIRIS [Suspect]
     Indication: PAROXYSMAL NOCTURNAL HAEMOGLOBINURIA
     Dosage: UNK
     Route: 042

REACTIONS (8)
  - PENILE PAIN [None]
  - RENAL PAIN [None]
  - SNORING [None]
  - RENAL DISORDER [None]
  - INSOMNIA [None]
  - MUSCULOSKELETAL PAIN [None]
  - WEIGHT INCREASED [None]
  - PYREXIA [None]
